FAERS Safety Report 6413252-3 (Version None)
Quarter: 2009Q4

REPORT INFORMATION
  Report Type: 
  Country: None (occurrence: None)
  Receive Date: 20091026
  Receipt Date: 20091014
  Transmission Date: 20100525
  Serious: No
  Sender: FDA-Public Use
  Company Number: US-JNJFOC-20091005162

PATIENT
  Sex: Male

DRUGS (3)
  1. DURAGESIC-100 [Suspect]
     Indication: BONE DISORDER
     Route: 062
     Dates: start: 20091013
  2. DURAGESIC-100 [Suspect]
     Route: 062
     Dates: end: 20091013
  3. DURAGESIC-100 [Suspect]
     Route: 062
     Dates: end: 20091013

REACTIONS (5)
  - FEELING ABNORMAL [None]
  - INAPPROPRIATE SCHEDULE OF DRUG ADMINISTRATION [None]
  - INSOMNIA [None]
  - OVERDOSE [None]
  - PRODUCT QUALITY ISSUE [None]
